FAERS Safety Report 7652646-5 (Version None)
Quarter: 2011Q3

REPORT INFORMATION
  Report Type: 
  Country: None (occurrence: None)
  Receive Date: 20110802
  Receipt Date: 20110802
  Transmission Date: 20111222
  Serious: No
  Sender: FDA-Public Use
  Company Number: None

PATIENT
  Sex: Female
  Weight: 27.6 kg

DRUGS (2)
  1. LAMOTRIGINE [Suspect]
     Indication: HOLOPROSENCEPHALY
  2. LAMOTRIGINE [Suspect]
     Indication: EPILEPSY

REACTIONS (3)
  - DRUG LEVEL FLUCTUATING [None]
  - CONVULSION [None]
  - PRODUCT SUBSTITUTION ISSUE [None]
